FAERS Safety Report 7426059-5 (Version None)
Quarter: 2011Q2

REPORT INFORMATION
  Report Type: 
  Country: None (occurrence: None)
  Receive Date: 20110420
  Receipt Date: 20110410
  Transmission Date: 20111010
  Serious: Yes (Other)
  Sender: FDA-Public Use
  Company Number: IL-JNJFOC-20110406301

PATIENT
  Age: 85 Year

DRUGS (3)
  1. ANTIHYPERTENSIVES [Concomitant]
     Indication: HYPERTENSION
     Route: 065
  2. REMINYL 24 [Suspect]
     Indication: DEMENTIA ALZHEIMER'S TYPE
     Route: 065
  3. CHOLESTEROL LOWERING DRUG [Concomitant]
     Indication: BLOOD CHOLESTEROL DECREASED
     Route: 065

REACTIONS (1)
  - RENAL IMPAIRMENT [None]
